FAERS Safety Report 13336179 (Version 2)
Quarter: 2017Q1

REPORT INFORMATION
  Report Type: Spontaneous
  Country: US (occurrence: US)
  Receive Date: 20170314
  Receipt Date: 20170328
  Transmission Date: 20170428
  Serious: Yes (Hospitalization, Other)
  Sender: FDA-Public Use
  Company Number: US-ACTELION-A-NJ2017-150939

PATIENT
  Age: 77 Year
  Sex: Female

DRUGS (2)
  1. UPTRAVI [Suspect]
     Active Substance: SELEXIPAG
     Indication: PULMONARY HYPERTENSION
     Dosage: 1000 MCG, BID
     Route: 048
  2. UPTRAVI [Suspect]
     Active Substance: SELEXIPAG
     Dosage: 200 UNK, UNK
     Route: 048

REACTIONS (3)
  - Peripheral swelling [Unknown]
  - Hypotension [Unknown]
  - Monoplegia [Unknown]

NARRATIVE: CASE EVENT DATE: 201703
